FAERS Safety Report 6858629-7 (Version None)
Quarter: 2010Q3

REPORT INFORMATION
  Report Type: 
  Country: None (occurrence: None)
  Receive Date: 20100719
  Receipt Date: 20080313
  Transmission Date: 20110219
  Serious: No
  Sender: FDA-Public Use
  Company Number: US-PFIZER INC-2008013277

PATIENT
  Sex: Male
  Weight: 79.545 kg

DRUGS (2)
  1. CHANTIX [Suspect]
     Dates: start: 20080101
  2. VITAMINS [Concomitant]

REACTIONS (4)
  - ANXIETY [None]
  - INCREASED APPETITE [None]
  - IRRITABILITY [None]
  - NERVOUSNESS [None]
